FAERS Safety Report 15894275 (Version 2)
Quarter: 2019Q1

REPORT INFORMATION
  Report Type: Spontaneous
  Country: US (occurrence: US)
  Receive Date: 20190131
  Receipt Date: 20190213
  Transmission Date: 20190417
  Serious: Yes (Life-Threatening, Hospitalization, Other)
  Sender: FDA-Public Use
  Company Number: US-SANIK-2019SA025132AA

PATIENT
  Age: 71 Year
  Sex: Female

DRUGS (2)
  1. CLOPIDOGREL BISULFATE. [Suspect]
     Active Substance: CLOPIDOGREL BISULFATE
     Indication: ANTIPLATELET THERAPY
     Dosage: UNK
  2. ACETYLSALICYLIC ACID [Suspect]
     Active Substance: ASPIRIN
     Indication: ANTIPLATELET THERAPY
     Dosage: UNK

REACTIONS (13)
  - Obstructive shock [Recovered/Resolved]
  - Cardiac output decreased [Recovered/Resolved]
  - Hypotension [Recovering/Resolving]
  - Left-to-right cardiac shunt [Recovered/Resolved]
  - Pericardial effusion [Recovered/Resolved]
  - Heart sounds abnormal [Recovering/Resolving]
  - Central venous pressure increased [Recovering/Resolving]
  - Pericardial haemorrhage [Recovered/Resolved]
  - Oliguria [Recovered/Resolved]
  - Cardiac tamponade [Recovered/Resolved]
  - Atrial fibrillation [Recovered/Resolved]
  - Pulmonary hypertension [Recovering/Resolving]
  - Haemoglobin decreased [Recovering/Resolving]
